FAERS Safety Report 4267089-4 (Version None)
Quarter: 2004Q1

REPORT INFORMATION
  Report Type: 
  Country: None (occurrence: None)
  Receive Date: 20040108
  Receipt Date: 20040105
  Transmission Date: 20041129
  Serious: Yes (Other)
  Sender: FDA-Public Use
  Company Number: PHBS2004BR00481

PATIENT
  Age: 75 Year
  Sex: Male

DRUGS (8)
  1. TEGRETOL [Suspect]
     Dosage: 300 MG/DAY
     Route: 048
  2. ISOSORBIDE [Suspect]
     Dosage: 40 MG/DAY
     Route: 048
  3. GLYBURIDE [Suspect]
     Dosage: 5 MG/DAY
     Route: 048
  4. FUROSEMIDE [Suspect]
     Dosage: 20 MG/DAY
     Route: 048
  5. DIGOXIN [Suspect]
     Dosage: 0.25 MG/DAY
     Route: 048
  6. LOSARTAN POTASSIUM [Suspect]
     Dosage: 25 MG/DAY
     Route: 048
  7. ACETYLSALICYLIC ACID SRT [Suspect]
     Dosage: 200 MG/DAY
     Route: 048
  8. SPIRONOLACTONE [Suspect]
     Dosage: 25 MG/DAY
     Route: 048

REACTIONS (1)
  - HYPERGLYCAEMIA [None]
